FAERS Safety Report 5320680-6 (Version None)
Quarter: 2007Q2

REPORT INFORMATION
  Report Type: 
  Country: None (occurrence: None)
  Receive Date: 20070509
  Receipt Date: 20070504
  Transmission Date: 20071010
  Serious: Yes (Death)
  Sender: FDA-Public Use
  Company Number: DE-BOEHRINGER INGELHEIM PHARMACEUTICALS, INC.-2007-DE-02693DE

PATIENT
  Sex: Male

DRUGS (1)
  1. SIFROL [Suspect]

REACTIONS (1)
  - COMPLETED SUICIDE [None]
